FAERS Safety Report 16324061 (Version 3)
Quarter: 2019Q3

REPORT INFORMATION
  Report Type: Spontaneous
  Country: US (occurrence: US)
  Receive Date: 20190517
  Receipt Date: 20190913
  Transmission Date: 20191004
  Serious: Yes (Other)
  Sender: FDA-Public Use
  Company Number: US-BIOGEN-2019BI00736574

PATIENT
  Sex: Female

DRUGS (18)
  1. TECFIDERA [Suspect]
     Active Substance: DIMETHYL FUMARATE
     Route: 065
     Dates: start: 20170623
  2. MYRBETRIQ [Concomitant]
     Active Substance: MIRABEGRON
  3. GLIPIZIDE. [Concomitant]
     Active Substance: GLIPIZIDE
  4. CLOTRIM [Concomitant]
  5. TECFIDERA [Suspect]
     Active Substance: DIMETHYL FUMARATE
     Route: 065
     Dates: start: 20190207, end: 201903
  6. FLUTICASONE. [Concomitant]
     Active Substance: FLUTICASONE
  7. GABAPENTIN. [Concomitant]
     Active Substance: GABAPENTIN
  8. BENZONATATE. [Concomitant]
     Active Substance: BENZONATATE
  9. PAROXETINE. [Concomitant]
     Active Substance: PAROXETINE
  10. MELOXICAM. [Concomitant]
     Active Substance: MELOXICAM
  11. CEPHALEXIN. [Concomitant]
     Active Substance: CEPHALEXIN
  12. TECFIDERA [Suspect]
     Active Substance: DIMETHYL FUMARATE
     Indication: MULTIPLE SCLEROSIS
     Route: 065
     Dates: end: 20190501
  13. FARXIGA [Concomitant]
     Active Substance: DAPAGLIFLOZIN PROPANEDIOL
  14. PRAVASTATIN. [Concomitant]
     Active Substance: PRAVASTATIN
  15. ESCITALOPRAM [Concomitant]
     Active Substance: ESCITALOPRAM OXALATE
  16. JARDIANCE [Concomitant]
     Active Substance: EMPAGLIFLOZIN
  17. VITAMIN D [Concomitant]
     Active Substance: VITAMIN D NOS
  18. FAMOTIDINE. [Concomitant]
     Active Substance: FAMOTIDINE

REACTIONS (4)
  - Autoimmune haemolytic anaemia [Not Recovered/Not Resolved]
  - Hypersensitivity [Recovered/Resolved]
  - Red blood cell count decreased [Recovered/Resolved]
  - Peripheral swelling [Recovered/Resolved]
